FAERS Safety Report 24422110 (Version 1)
Quarter: 2024Q4

REPORT INFORMATION
  Report Type: Spontaneous
  Country: US (occurrence: US)
  Receive Date: 20241010
  Receipt Date: 20241010
  Transmission Date: 20250114
  Serious: No
  Sender: AMNEAL
  Company Number: US-AMNEAL PHARMACEUTICALS-2024-AMRX-02430

PATIENT
  Sex: Female
  Weight: 61.224 kg

DRUGS (1)
  1. OFLOXACIN [Suspect]
     Active Substance: OFLOXACIN
     Indication: Ear infection
     Dosage: 0.3%, 2 /DAY
     Route: 065

REACTIONS (2)
  - Product leakage [Unknown]
  - No adverse event [Unknown]
